FAERS Safety Report 9935611 (Version 1)
Quarter: 2014Q1

REPORT INFORMATION
  Report Type: Spontaneous
  Country: DK (occurrence: DK)
  Receive Date: 20140228
  Receipt Date: 20140228
  Transmission Date: 20141002
  Serious: Yes (Other)
  Sender: FDA-Public Use
  Company Number: PHHY2014DK020408

PATIENT
  Age: 28 Year
  Sex: Female

DRUGS (7)
  1. MANDOLGIN RETARD [Suspect]
     Indication: PAIN
     Dates: start: 20110906, end: 20110908
  2. BENZYLPENICILLIN PANPHARMA [Suspect]
     Indication: PHARYNGITIS STREPTOCOCCAL
     Route: 042
     Dates: start: 20110906, end: 20110906
  3. PENTREXYL [Suspect]
     Indication: PHARYNGITIS STREPTOCOCCAL
     Dosage: 1 G, QID
     Route: 042
     Dates: start: 20110906, end: 20110907
  4. ZINACEF [Concomitant]
     Indication: PHARYNGITIS STREPTOCOCCAL
     Dosage: 1.5 G, TID
     Dates: start: 20110907, end: 20110908
  5. PRIMPERAN [Concomitant]
     Dates: start: 20110906
  6. DICLON [Concomitant]
     Dates: start: 20110908
  7. ZOFRAN [Concomitant]
     Dates: start: 20110906

REACTIONS (10)
  - Angioedema [Not Recovered/Not Resolved]
  - Hypersensitivity [Unknown]
  - Throat tightness [Unknown]
  - Urticaria chronic [Not Recovered/Not Resolved]
  - Paraesthesia [Unknown]
  - Lip swelling [Unknown]
  - Hypotension [Unknown]
  - Pharyngeal oedema [Unknown]
  - Swelling face [Unknown]
  - Paraesthesia oral [Unknown]
